FAERS Safety Report 9896469 (Version 2)
Quarter: 2014Q1

REPORT INFORMATION
  Report Type: Spontaneous
  Country: US (occurrence: US)
  Receive Date: 20140213
  Receipt Date: 20140213
  Transmission Date: 20141002
  Serious: No
  Sender: FDA-Public Use
  Company Number: US-BRISTOL-MYERS SQUIBB COMPANY-17453747

PATIENT
  Sex: Female

DRUGS (9)
  1. ORENCIA [Suspect]
     Dosage: SWITCHED TO SUBCUTANEOUS ABATACEPT
     Route: 042
     Dates: start: 20130108
  2. PRILOSEC [Concomitant]
  3. METHOTREXATE [Concomitant]
  4. FOLIC ACID [Concomitant]
  5. LOTREL [Concomitant]
  6. ASA [Concomitant]
  7. ATIVAN [Concomitant]
  8. ZOCOR [Concomitant]
  9. VITAMIN D [Concomitant]

REACTIONS (2)
  - Infusion related reaction [Recovered/Resolved]
  - Anxiety [Unknown]
